FAERS Safety Report 22642217 (Version 1)
Quarter: 2023Q2

REPORT INFORMATION
  Report Type: Other
  Country: None (occurrence: RU)
  Receive Date: 20230626
  Receipt Date: 20230626
  Transmission Date: 20230722
  Serious: Yes (Other)
  Sender: FDA-Public Use
  Company Number: RU-B.Braun Medical Inc.-2143137

PATIENT
  Age: 20 Year
  Sex: Female

DRUGS (4)
  1. CEFTRIAXONE SODIUM [Suspect]
     Active Substance: CEFTRIAXONE SODIUM
     Indication: Infection
     Route: 042
  2. MEROPENEM [Suspect]
     Active Substance: MEROPENEM
  3. LEVOFLOXACIN [Suspect]
     Active Substance: LEVOFLOXACIN
  4. CHLOROPYRAMINE [Concomitant]
     Active Substance: CHLOROPYRAMINE

REACTIONS (1)
  - Angioedema [Unknown]
